FAERS Safety Report 13840214 (Version 1)
Quarter: 2017Q3

REPORT INFORMATION
  Report Type: Spontaneous
  Country: US (occurrence: US)
  Receive Date: 20170807
  Receipt Date: 20170807
  Transmission Date: 20171127
  Serious: No
  Sender: FDA-Public Use
  Company Number: None

PATIENT
  Age: 72 Year
  Sex: Male

DRUGS (1)
  1. ATORVASTATIN TAB [Suspect]
     Active Substance: ATORVASTATIN
     Route: 048

REACTIONS (4)
  - Burning sensation [None]
  - Product substitution issue [None]
  - Product odour abnormal [None]
  - Product colour issue [None]

NARRATIVE: CASE EVENT DATE: 20170724
